FAERS Safety Report 14348760 (Version 1)
Quarter: 2018Q1

REPORT INFORMATION
  Report Type: Spontaneous
  Country: US (occurrence: US)
  Receive Date: 20180104
  Receipt Date: 20180104
  Transmission Date: 20180509
  Serious: Yes (Hospitalization, Other)
  Sender: FDA-Public Use
  Company Number: US-VISTAPHARM, INC.-VER201712-001628

PATIENT
  Age: 42 Year
  Sex: Female
  Weight: 73 kg

DRUGS (7)
  1. OXYCODONE [Suspect]
     Active Substance: OXYCODONE
     Indication: PAIN
  2. FENTANYL. [Concomitant]
     Active Substance: FENTANYL
     Indication: BREAKTHROUGH PAIN
     Route: 042
  3. OXYCODONE [Suspect]
     Active Substance: OXYCODONE
     Indication: BREAKTHROUGH PAIN
     Route: 048
  4. METHADONE [Concomitant]
     Active Substance: METHADONE HYDROCHLORIDE
     Indication: PAIN
  5. METHADONE [Concomitant]
     Active Substance: METHADONE HYDROCHLORIDE
     Indication: BREAKTHROUGH PAIN
     Route: 042
  6. METHADONE [Concomitant]
     Active Substance: METHADONE HYDROCHLORIDE
  7. FENTANYL. [Concomitant]
     Active Substance: FENTANYL
     Indication: PAIN

REACTIONS (4)
  - Toxicity to various agents [Unknown]
  - Mental status changes [Recovered/Resolved]
  - Drug-disease interaction [Recovered/Resolved]
  - Lethargy [Unknown]
